FAERS Safety Report 9354293 (Version 1)
Quarter: 2013Q2

REPORT INFORMATION
  Report Type: Spontaneous
  Country: KR (occurrence: KR)
  Receive Date: 20130618
  Receipt Date: 20130618
  Transmission Date: 20140414
  Serious: Yes (Death)
  Sender: FDA-Public Use
  Company Number: KR-TEVA-412224ISR

PATIENT
  Age: 48 Year
  Sex: Female

DRUGS (2)
  1. CARBOPLATIN [Suspect]
     Indication: LEIOMYOSARCOMA
     Dosage: AUC 5 Q3W. ADR ONSET DURING FIRST CYCLE OF CHEMOTHERAPY
     Route: 041
  2. PACLITAXEL [Suspect]
     Indication: LEIOMYOSARCOMA
     Dosage: 175 MG/M2 Q3W. ADR ONSET DURING FIRST CYCLE OF CHEMOTHERAPY
     Route: 041

REACTIONS (1)
  - Septic shock [Fatal]
